FAERS Safety Report 17522496 (Version 1)
Quarter: 2020Q1

REPORT INFORMATION
  Report Type: Spontaneous
  Country: TH (occurrence: TH)
  Receive Date: 20200310
  Receipt Date: 20200310
  Transmission Date: 20200409
  Serious: Yes (Death, Life-Threatening, Hospitalization)
  Sender: FDA-Public Use
  Company Number: TH-MYLANLABS-2020M1026757

PATIENT
  Age: 35 Year
  Sex: Male

DRUGS (2)
  1. AMOXICILLIN/CLAVULANIC ACID [Suspect]
     Active Substance: AMOXICILLIN\CLAVULANIC ACID
     Indication: SINUSITIS BACTERIAL
     Dosage: UNK
     Route: 048
     Dates: start: 201803
  2. EPINEPHRINE. [Suspect]
     Active Substance: EPINEPHRINE
     Indication: ANAPHYLACTIC REACTION
     Dosage: 2 SEPARATE DOSES 5 MINUTES APART.
     Route: 065
     Dates: start: 201803

REACTIONS (5)
  - Acute respiratory distress syndrome [Fatal]
  - Drug ineffective [Unknown]
  - Anaphylactic reaction [Fatal]
  - Acute kidney injury [Fatal]
  - Multiple organ dysfunction syndrome [Fatal]

NARRATIVE: CASE EVENT DATE: 201803
